FAERS Safety Report 22536757 (Version 1)
Quarter: 2023Q2

REPORT INFORMATION
  Report Type: Report from Study
  Country: CA (occurrence: CA)
  Receive Date: 20230608
  Receipt Date: 20230608
  Transmission Date: 20230722
  Serious: Yes (Hospitalization)
  Sender: FDA-Public Use
  Company Number: CA-OTSUKA-2022_047548

PATIENT
  Sex: Male

DRUGS (2)
  1. ARIPIPRAZOLE [Suspect]
     Active Substance: ARIPIPRAZOLE
     Indication: Product used for unknown indication
     Dosage: 400 MG, EVERY 4 WEEKS
     Route: 030
  2. ARIPIPRAZOLE [Suspect]
     Active Substance: ARIPIPRAZOLE
     Dosage: 400 MG, EVERY 3 WEEKS
     Route: 030

REACTIONS (7)
  - Psychotic disorder [Unknown]
  - Neglect of personal appearance [Unknown]
  - Anger [Not Recovered/Not Resolved]
  - Depression [Not Recovered/Not Resolved]
  - Poor personal hygiene [Unknown]
  - Inappropriate schedule of product administration [Unknown]
  - Product dose omission issue [Unknown]
